FAERS Safety Report 19768288 (Version 2)
Quarter: 2021Q3

REPORT INFORMATION
  Report Type: Spontaneous
  Country: UA (occurrence: UA)
  Receive Date: 20210831
  Receipt Date: 20210923
  Transmission Date: 20211014
  Serious: Yes (Death, Hospitalization, Other)
  Sender: FDA-Public Use
  Company Number: UA-SK LIFE SCIENCE, INC-SKPVG-2021-000911

PATIENT

DRUGS (4)
  1. LEVETIRACETAM. [Concomitant]
     Active Substance: LEVETIRACETAM
     Indication: EPILEPSY
     Dosage: 2000 MILLIGRAM, QD
     Route: 048
     Dates: start: 20170111, end: 20210729
  2. CARBAMAZEPIN [Concomitant]
     Active Substance: CARBAMAZEPINE
     Indication: EPILEPSY
     Dosage: 1400 MILLIGRAM, QD
     Route: 065
     Dates: start: 20170111, end: 20210729
  3. LAMOTRIGINE. [Concomitant]
     Active Substance: LAMOTRIGINE
     Indication: EPILEPSY
     Dosage: 100 MILLIGRAM
     Route: 048
     Dates: start: 20170111, end: 20210729
  4. XCOPRI [Suspect]
     Active Substance: CENOBAMATE
     Indication: PRODUCT USED FOR UNKNOWN INDICATION
     Dosage: UNK MILLIGRAM
     Route: 065
     Dates: end: 20210729

REACTIONS (1)
  - Hepatitis B [Fatal]

NARRATIVE: CASE EVENT DATE: 20210728
